FAERS Safety Report 18784407 (Version 1)
Quarter: 2021Q1

REPORT INFORMATION
  Report Type: Report from Study
  Country: US (occurrence: US)
  Receive Date: 20210125
  Receipt Date: 20210125
  Transmission Date: 20210419
  Serious: Yes (Death)
  Sender: FDA-Public Use
  Company Number: US-TAIHO ONCOLOGY  INC-EU-2021-00198

PATIENT
  Age: 63 Year
  Sex: Male
  Weight: 84.44 kg

DRUGS (17)
  1. PROCHLORPERAZINE. [Concomitant]
     Active Substance: PROCHLORPERAZINE
  2. LONSURF [Suspect]
     Active Substance: TIPIRACIL HYDROCHLORIDE\TRIFLURIDINE
     Indication: COLON CANCER
     Dosage: CYCLE NUMBER UNKNOWN
     Route: 048
     Dates: start: 20200303
  3. MIRTAZAPINE. [Concomitant]
     Active Substance: MIRTAZAPINE
  4. POTASSIUM [Concomitant]
     Active Substance: POTASSIUM
  5. OXYCODONE [Concomitant]
     Active Substance: OXYCODONE
  6. NEULASTA [Concomitant]
     Active Substance: PEGFILGRASTIM
  7. TRAZODONE [Concomitant]
     Active Substance: TRAZODONE HYDROCHLORIDE
  8. AUGMENTIN [Concomitant]
     Active Substance: AMOXICILLIN\CLAVULANATE POTASSIUM
  9. BACLOFEN. [Concomitant]
     Active Substance: BACLOFEN
  10. PAROXETINE. [Concomitant]
     Active Substance: PAROXETINE
  11. FUROSEMIDE. [Concomitant]
     Active Substance: FUROSEMIDE
  12. LACTULOSE. [Concomitant]
     Active Substance: LACTULOSE
  13. METOCLOPRAMIDE. [Concomitant]
     Active Substance: METOCLOPRAMIDE
  14. CHLORPROMAZINE. [Concomitant]
     Active Substance: CHLORPROMAZINE
  15. ONDANSETRON [Concomitant]
     Active Substance: ONDANSETRON
  16. XARELTO [Concomitant]
     Active Substance: RIVAROXABAN
  17. ZOLPIDEM [Concomitant]
     Active Substance: ZOLPIDEM TARTRATE

REACTIONS (1)
  - Death [Fatal]

NARRATIVE: CASE EVENT DATE: 20210112
